FAERS Safety Report 16205040 (Version 1)
Quarter: 2019Q2

REPORT INFORMATION
  Report Type: Spontaneous
  Country: US (occurrence: US)
  Receive Date: 20190416
  Receipt Date: 20190416
  Transmission Date: 20190711
  Serious: No
  Sender: FDA-Public Use
  Company Number: US-CHILTERN-US-2019-000322

PATIENT
  Sex: Female

DRUGS (1)
  1. RHOPRESSA [Suspect]
     Active Substance: NETARSUDIL MESYLATE
     Indication: INTRAOCULAR PRESSURE INCREASED
     Dosage: UNK
     Route: 047
     Dates: start: 201811, end: 20181224

REACTIONS (1)
  - Hordeolum [Not Recovered/Not Resolved]

NARRATIVE: CASE EVENT DATE: 20181215
